FAERS Safety Report 8838237 (Version 1)
Quarter: 2012Q4

REPORT INFORMATION
  Report Type: 
  Country: GB (occurrence: GB)
  Receive Date: 20121012
  Receipt Date: 20121012
  Transmission Date: 20130627
  Serious: Yes (Hospitalization)
  Sender: FDA-Public Use
  Company Number: GB-ROCHE-1144417

PATIENT
  Age: 68 Year
  Sex: Female

DRUGS (4)
  1. RITUXIMAB [Suspect]
     Indication: RHEUMATOID ARTHRITIS
     Route: 041
     Dates: start: 20110419, end: 20110503
  2. RITUXIMAB [Suspect]
     Route: 065
     Dates: end: 20111129
  3. RITUXIMAB [Suspect]
     Route: 065
     Dates: end: 20120807
  4. LEFLUNOMIDE [Concomitant]
     Indication: RHEUMATOID ARTHRITIS
     Route: 048
     Dates: start: 20100927, end: 20120606

REACTIONS (1)
  - Femoral neck fracture [Recovered/Resolved with Sequelae]
